FAERS Safety Report 6371112-0 (Version None)
Quarter: 2009Q3

REPORT INFORMATION
  Report Type: 
  Country: None (occurrence: None)
  Receive Date: 20090923
  Receipt Date: 20090821
  Transmission Date: 20100115
  Serious: No
  Sender: FDA-Public Use
  Company Number: US-BAYER-200913662BCC

PATIENT
  Age: 80 Year
  Sex: Female
  Weight: 54 kg

DRUGS (4)
  1. ALEVE (CAPLET) [Suspect]
     Indication: ANALGESIA
     Route: 048
  2. METOPROLOL TARTRATE [Concomitant]
     Route: 065
  3. SUCRALFATE [Concomitant]
     Route: 065
  4. CALTRATE WITH VITAMIN D [Concomitant]
     Route: 065

REACTIONS (1)
  - DRUG LEVEL DECREASED [None]
